FAERS Safety Report 8950349 (Version 1)
Quarter: 2012Q4

REPORT INFORMATION
  Report Type: Spontaneous
  Country: US (occurrence: None)
  Receive Date: 20121130
  Receipt Date: 20121130
  Transmission Date: 20130627
  Serious: Yes (Other)
  Sender: FDA-Public Use
  Company Number: None

PATIENT
  Age: 24 Year
  Sex: Male
  Weight: 85.28 kg

DRUGS (1)
  1. CREST 3D WHITE GLAMOROUS WHITE [Suspect]

REACTIONS (10)
  - Nerve compression [None]
  - Weight decreased [None]
  - Throat irritation [None]
  - Burning sensation [None]
  - Tongue ulceration [None]
  - Pharyngeal ulceration [None]
  - Gingival ulceration [None]
  - Dry mouth [None]
  - Dysphagia [None]
  - Aphagia [None]
